FAERS Safety Report 22341206 (Version 2)
Quarter: 2023Q2

REPORT INFORMATION
  Report Type: Spontaneous
  Country: US (occurrence: US)
  Receive Date: 20230518
  Receipt Date: 20230524
  Transmission Date: 20230721
  Serious: No
  Sender: FDA-Public Use
  Company Number: US-PFIZER INC-PV202300087166

PATIENT
  Age: 42 Year
  Sex: Male

DRUGS (2)
  1. OXBRYTA [Suspect]
     Active Substance: VOXELOTOR
     Indication: Sickle cell disease
     Dosage: 1500 MG, DAILY
  2. OXBRYTA [Suspect]
     Active Substance: VOXELOTOR
     Dosage: 1000 MG, 2X/WEEK
     Route: 048

REACTIONS (4)
  - Off label use [Unknown]
  - Haemoglobin increased [Recovering/Resolving]
  - Painful erection [Recovering/Resolving]
  - Priapism [Recovering/Resolving]
